FAERS Safety Report 13614423 (Version 2)
Quarter: 2018Q2

REPORT INFORMATION
  Report Type: Spontaneous
  Country: RO (occurrence: RO)
  Receive Date: 20170606
  Receipt Date: 20180426
  Transmission Date: 20180711
  Serious: Yes (Hospitalization, Other)
  Sender: FDA-Public Use
  Company Number: RO-AUROBINDO-AUR-APL-2017-35002

PATIENT
  Age: 28 Year
  Sex: Female

DRUGS (9)
  1. ZIDOVUDINE. [Suspect]
     Active Substance: ZIDOVUDINE
     Dosage: ()
     Route: 065
     Dates: start: 2006
  2. LAMIVUDINE. [Suspect]
     Active Substance: LAMIVUDINE
     Indication: HIV INFECTION
     Dosage: ()
     Route: 065
     Dates: start: 2006
  3. LAMIVUDINE. [Suspect]
     Active Substance: LAMIVUDINE
     Dosage: ()
     Route: 065
     Dates: start: 2004
  4. ABACAVIR. [Suspect]
     Active Substance: ABACAVIR
     Indication: HIV INFECTION
     Route: 065
  5. ZIDOVUDINE. [Suspect]
     Active Substance: ZIDOVUDINE
     Indication: HIV INFECTION
     Route: 065
  6. SULFAMETHOXAZOLE AND TRIMETHOPRIM [Suspect]
     Active Substance: SULFAMETHOXAZOLE\TRIMETHOPRIM
     Indication: CEREBRAL TOXOPLASMOSIS
     Dosage: ()
     Route: 065
     Dates: start: 2015
  7. EFAVIRENZ. [Suspect]
     Active Substance: EFAVIRENZ
     Indication: HIV INFECTION
     Dosage: ()
     Route: 065
     Dates: start: 2004
  8. ZIDOVUDINE. [Suspect]
     Active Substance: ZIDOVUDINE
     Dosage: ()
     Route: 065
     Dates: start: 2004
  9. LOPINAVIR + RITONAVIR [Suspect]
     Active Substance: LOPINAVIR\RITONAVIR
     Indication: HIV INFECTION
     Route: 065

REACTIONS (9)
  - Motor dysfunction [Recovering/Resolving]
  - Central nervous system lesion [Recovering/Resolving]
  - Loss of consciousness [Recovered/Resolved]
  - Ballismus [Recovered/Resolved]
  - Intracranial mass [Recovering/Resolving]
  - Cerebral toxoplasmosis [Recovering/Resolving]
  - Product use issue [Unknown]
  - Brain oedema [Recovering/Resolving]
  - Treatment noncompliance [Recovered/Resolved]

NARRATIVE: CASE EVENT DATE: 2015
